FAERS Safety Report 20901146 (Version 2)
Quarter: 2022Q2

REPORT INFORMATION
  Report Type: Report from Study
  Country: CA (occurrence: CA)
  Receive Date: 20220601
  Receipt Date: 20220620
  Transmission Date: 20220721
  Serious: Yes (Other)
  Sender: FDA-Public Use
  Company Number: CA-JNJFOC-20220562248

PATIENT
  Sex: Female

DRUGS (19)
  1. SELEXIPAG [Suspect]
     Active Substance: SELEXIPAG
     Indication: Pulmonary hypertension
     Route: 048
     Dates: start: 20160627
  2. MACITENTAN [Suspect]
     Active Substance: MACITENTAN
     Indication: Pulmonary hypertension
     Route: 048
     Dates: start: 20160426
  3. VITAMIN B3 [Concomitant]
     Active Substance: NIACIN
  4. ADCIRCA [Concomitant]
     Active Substance: TADALAFIL
  5. DIGOXIN [Concomitant]
     Active Substance: DIGOXIN
  6. DILTIAZEM [Concomitant]
     Active Substance: DILTIAZEM
  7. SPIRIVA [Concomitant]
     Active Substance: TIOTROPIUM BROMIDE MONOHYDRATE
  8. WARFARIN [Concomitant]
     Active Substance: WARFARIN
  9. PANTOPRAZOLE [Concomitant]
     Active Substance: PANTOPRAZOLE
  10. ZOPICLONE [Concomitant]
     Active Substance: ZOPICLONE
  11. ERGOCALCIFEROL [Concomitant]
     Active Substance: ERGOCALCIFEROL
  12. IRON [Concomitant]
     Active Substance: IRON
     Dates: start: 2015
  13. IRON [Concomitant]
     Active Substance: IRON
     Dates: start: 201602
  14. IRON [Concomitant]
     Active Substance: IRON
     Dates: start: 201606
  15. ACETYLCARNITINE [Concomitant]
     Active Substance: ACETYLCARNITINE
  16. FOLIC ACID [Concomitant]
     Active Substance: FOLIC ACID
  17. ALPHA LIPOIC ACID [Concomitant]
     Active Substance: .ALPHA.-LIPOIC ACID
  18. UBIQUINOL [Concomitant]
     Active Substance: UBIQUINOL
  19. ASCORBIC ACID [Concomitant]
     Active Substance: ASCORBIC ACID

REACTIONS (1)
  - Adverse drug reaction [Not Recovered/Not Resolved]
